FAERS Safety Report 8553105-8 (Version None)
Quarter: 2012Q3

REPORT INFORMATION
  Report Type: 
  Country: None (occurrence: None)
  Receive Date: 20120724
  Receipt Date: 20120724
  Transmission Date: 20120928
  Serious: Yes (Life-Threatening, Hospitalization, Other)
  Sender: FDA-Public Use
  Company Number: None

PATIENT
  Sex: Female
  Weight: 205 kg

DRUGS (2)
  1. ZOLPIDEM [Suspect]
     Indication: INSOMNIA
     Dosage: 1 NIGHTLY ORALY
     Route: 048
     Dates: start: 20090101, end: 20120101
  2. HYDROCODONE BITARTRATE + ACETAMINOPHEN [Suspect]
     Indication: MYALGIA
     Dosage: 2 DAILY ORALY
     Route: 048
     Dates: start: 20090101, end: 20120101

REACTIONS (5)
  - LIVER DISORDER [None]
  - BACK PAIN [None]
  - CARDIAC VALVE DISEASE [None]
  - PERICARDIAL DISEASE [None]
  - PERICARDIAL EFFUSION [None]
